FAERS Safety Report 7268163-0 (Version None)
Quarter: 2011Q1

REPORT INFORMATION
  Report Type: 
  Country: None (occurrence: None)
  Receive Date: 20110201
  Receipt Date: 20101122
  Transmission Date: 20110831
  Serious: No
  Sender: FDA-Public Use
  Company Number: US-BAYER-2010-006698

PATIENT
  Sex: Female
  Weight: 50 kg

DRUGS (10)
  1. ISOSORBIDE [ISOSORBIDE] [Concomitant]
  2. MULTI-VITAMINS [Concomitant]
  3. TOPROL-XL [Concomitant]
  4. POTASSIUM [POTASSIUM] [Concomitant]
  5. ACETYLSALICYLIC ACID SRT [Concomitant]
  6. RANEXA [Concomitant]
  7. TYLENOL REGULAR [Concomitant]
  8. ALEVE (CAPLET) [Suspect]
     Indication: ARTHRITIS
  9. FUROSEMIDE [Concomitant]
  10. LIPITOR [Concomitant]

REACTIONS (1)
  - DRUG INEFFECTIVE [None]
